FAERS Safety Report 13755613 (Version 1)
Quarter: 2017Q3

REPORT INFORMATION
  Report Type: Spontaneous
  Country: US (occurrence: US)
  Receive Date: 20170714
  Receipt Date: 20170714
  Transmission Date: 20171127
  Serious: No
  Sender: FDA-Public Use
  Company Number: None

PATIENT
  Age: 38 Year
  Sex: Female

DRUGS (1)
  1. GLIMEPIRIDE. [Suspect]
     Active Substance: GLIMEPIRIDE
     Dosage: ?          OTHER DOSE:MG;?
     Route: 048
     Dates: start: 20170602, end: 20170714

REACTIONS (3)
  - Product substitution issue [None]
  - Drug ineffective [None]
  - Blood glucose increased [None]
